FAERS Safety Report 5510950-0 (Version None)
Quarter: 2007Q4

REPORT INFORMATION
  Report Type: 
  Country: None (occurrence: None)
  Receive Date: 20071030
  Receipt Date: 20060919
  Transmission Date: 20080405
  Serious: Yes (Hospitalization)
  Sender: FDA-Public Use
  Company Number: HQWYE894119SEP06

PATIENT
  Age: 33 Year
  Sex: Female

DRUGS (3)
  1. PREMARIN [Suspect]
     Indication: MENORRHAGIA
     Dosage: 1.25MG TWICE DAILY FOR 7 DAYS, ORAL
     Route: 048
     Dates: start: 20050101
  2. ORTHO EVRA [Suspect]
     Indication: CONTRACEPTION
     Dosage: ONE DOSE THREE TIMES EVERY 4 WEEKS, TRANSDERMAL
     Route: 062
     Dates: start: 20050401, end: 20050519
  3. PROTONIX [Concomitant]

REACTIONS (2)
  - DEEP VEIN THROMBOSIS [None]
  - PULMONARY EMBOLISM [None]
